FAERS Safety Report 25700080 (Version 1)
Quarter: 2025Q3

REPORT INFORMATION
  Report Type: Spontaneous
  Country: GB (occurrence: GB)
  Receive Date: 20250819
  Receipt Date: 20250819
  Transmission Date: 20251021
  Serious: Yes (Other)
  Sender: SANDOZ
  Company Number: GB-SANDOZ-SDZ2025GB058633

PATIENT
  Age: 25 Year
  Sex: Male

DRUGS (4)
  1. OLANZAPINE [Suspect]
     Active Substance: OLANZAPINE
     Indication: Schizophrenia
     Route: 065
     Dates: start: 200707
  2. OLANZAPINE [Suspect]
     Active Substance: OLANZAPINE
     Indication: Depression
  3. RISPERIDONE [Suspect]
     Active Substance: RISPERIDONE
     Indication: Schizophrenia
     Dosage: 8 MG, BID 4 WEEK PERIOD
     Route: 065
  4. RISPERIDONE [Suspect]
     Active Substance: RISPERIDONE
     Indication: Depression

REACTIONS (2)
  - False positive investigation result [Unknown]
  - Therapy partial responder [Unknown]
